FAERS Safety Report 10602082 (Version 2)
Quarter: 2015Q1

REPORT INFORMATION
  Report Type: Spontaneous
  Country: US (occurrence: US)
  Receive Date: 20141124
  Receipt Date: 20150129
  Transmission Date: 20150720
  Serious: Yes (Life-Threatening, Hospitalization, Other)
  Sender: FDA-Public Use
  Company Number: US-BAYER-2014-172586

PATIENT
  Age: 30 Year
  Sex: Female
  Weight: 74.83 kg

DRUGS (2)
  1. MIRENA [Suspect]
     Active Substance: LEVONORGESTREL
     Indication: CONTRACEPTION
     Dosage: 20 MCG/24HR, CONT
     Route: 015
     Dates: start: 20111031, end: 20130118
  2. MIRENA [Suspect]
     Active Substance: LEVONORGESTREL
     Indication: CONTRACEPTION
     Dosage: 20 MCG/24HR, CONT
     Route: 015
     Dates: start: 200807, end: 201012

REACTIONS (13)
  - General physical health deterioration [None]
  - Infection [None]
  - Off label use [None]
  - Device issue [None]
  - Uterine perforation [None]
  - Genital haemorrhage [None]
  - Abdominal pain [None]
  - Anhedonia [None]
  - Anxiety [None]
  - Emotional distress [None]
  - Injury [None]
  - Dyspareunia [None]
  - Pain [None]

NARRATIVE: CASE EVENT DATE: 201212
